FAERS Safety Report 24105463 (Version 1)
Quarter: 2024Q3

REPORT INFORMATION
  Report Type: Spontaneous
  Country: US (occurrence: None)
  Receive Date: 20240717
  Receipt Date: 20240717
  Transmission Date: 20241016
  Serious: Yes (Hospitalization)
  Sender: Public
  Company Number: None

PATIENT
  Age: 42 Year
  Sex: Female

DRUGS (1)
  1. ICATIBANT [Suspect]
     Active Substance: ICATIBANT ACETATE
     Indication: Angioedema
     Dosage: OTHER FREQUENCY : PRN;?

REACTIONS (7)
  - Suicidal ideation [None]
  - Cardiac disorder [None]
  - Seizure [None]
  - Bradycardia [None]
  - Electrolyte imbalance [None]
  - Blood sodium decreased [None]
  - Abdominal distension [None]

NARRATIVE: CASE EVENT DATE: 20240630
